FAERS Safety Report 9837993 (Version 6)
Quarter: 2014Q2

REPORT INFORMATION
  Report Type: Spontaneous
  Country: US (occurrence: US)
  Receive Date: 20140123
  Receipt Date: 20140411
  Transmission Date: 20141212
  Serious: Yes (Hospitalization, Other)
  Sender: FDA-Public Use
  Company Number: US-BAXTER-2014BAX002418

PATIENT
  Age: 64 Year
  Sex: Male

DRUGS (1)
  1. DIANEAL LOW CALCIUM [Suspect]
     Indication: PERITONEAL DIALYSIS
     Route: 033
     Dates: start: 20130520, end: 20140312

REACTIONS (4)
  - Transplant failure [Recovered/Resolved]
  - Peritonitis bacterial [Recovered/Resolved]
  - Postoperative wound infection [Recovered/Resolved]
  - Disease complication [Unknown]
